FAERS Safety Report 23360927 (Version 1)
Quarter: 2024Q1

REPORT INFORMATION
  Report Type: Spontaneous
  Country: RU (occurrence: None)
  Receive Date: 20240103
  Receipt Date: 20240103
  Transmission Date: 20240410
  Serious: Yes (Other)
  Sender: FDA-Public Use
  Company Number: 2024A000311

PATIENT
  Age: 70 Year
  Sex: Female

DRUGS (1)
  1. SYMBICORT [Suspect]
     Active Substance: BUDESONIDE\FORMOTEROL FUMARATE DIHYDRATE
     Indication: Asthma
     Dosage: 0.5 MG/ML TWO TIMES A DAY0.5MG/ML TWO TIMES A DAY
     Route: 055

REACTIONS (3)
  - Asthma [Recovered/Resolved]
  - Respiratory tract infection viral [Recovered/Resolved]
  - COVID-19 [Recovered/Resolved]
